FAERS Safety Report 19774965 (Version 4)
Quarter: 2023Q2

REPORT INFORMATION
  Report Type: Spontaneous
  Country: US (occurrence: None)
  Receive Date: 20210901
  Receipt Date: 20230630
  Transmission Date: 20230721
  Serious: Yes (Death, Disabling, Other)
  Sender: FDA-Public Use
  Company Number: 2021A698057

PATIENT
  Age: 23069 Day
  Sex: Female
  Weight: 68 kg

DRUGS (49)
  1. NEXIUM [Suspect]
     Active Substance: ESOMEPRAZOLE MAGNESIUM
     Indication: Dyspepsia
     Dosage: FOR VARIOUS DATES AND YEARS APPROXIMATELY THROUGH 2018
     Route: 048
  2. NEXIUM [Suspect]
     Active Substance: ESOMEPRAZOLE MAGNESIUM
     Indication: Dyspepsia
     Dosage: 40.0MG UNKNOWN
     Route: 048
  3. NEXIUM [Suspect]
     Active Substance: ESOMEPRAZOLE MAGNESIUM
     Indication: Dyspepsia
     Dosage: 40.0MG UNKNOWN
     Route: 048
     Dates: start: 2016, end: 20171218
  4. PANTOPRAZOLE [Suspect]
     Active Substance: PANTOPRAZOLE
     Indication: Gastrooesophageal reflux disease
     Dosage: GENERIC40.0MG UNKNOWN
     Route: 065
  5. PANTOPRAZOLE [Suspect]
     Active Substance: PANTOPRAZOLE
     Indication: Gastrooesophageal reflux disease
     Dosage: GENERIC40.0MG UNKNOWN
     Route: 065
     Dates: start: 20180802
  6. ATORVASTATIN [Concomitant]
     Active Substance: ATORVASTATIN
     Indication: Blood cholesterol increased
     Dates: start: 2016
  7. LISINOPRIL [Concomitant]
     Active Substance: LISINOPRIL
     Indication: Hypertension
     Dates: start: 2017
  8. CEPHALEXIN [Concomitant]
     Active Substance: CEPHALEXIN
     Indication: Infection
     Dates: start: 2017
  9. LASIX [Concomitant]
     Active Substance: FUROSEMIDE
     Indication: Diuretic therapy
     Dates: start: 2017
  10. TRAMADOL [Concomitant]
     Active Substance: TRAMADOL
     Indication: Pain
     Dates: start: 2017
  11. AMOXICILLIN [Concomitant]
     Active Substance: AMOXICILLIN
     Indication: Infection
     Dates: start: 2017
  12. VITAMIN D3 [Concomitant]
     Active Substance: CHOLECALCIFEROL
     Indication: Hypovitaminosis
     Dates: start: 2015
  13. ASPIRIN [Concomitant]
     Active Substance: ASPIRIN
     Indication: Myocardial infarction
     Dates: start: 2016
  14. POTASSIUM [Concomitant]
     Active Substance: POTASSIUM
     Indication: Combined immunodeficiency
     Dates: start: 2016
  15. LIDOCAINE [Concomitant]
     Active Substance: LIDOCAINE
  16. VERSED [Concomitant]
     Active Substance: MIDAZOLAM HYDROCHLORIDE
  17. CLINDAMYCIN [Concomitant]
     Active Substance: CLINDAMYCIN
  18. FENTANYL [Concomitant]
     Active Substance: FENTANYL
  19. BENADRYL [Concomitant]
     Active Substance: DIPHENHYDRAMINE HYDROCHLORIDE
  20. CALCIUM ACETATE [Concomitant]
     Active Substance: CALCIUM ACETATE
  21. HEPARIN SODIUM [Concomitant]
     Active Substance: HEPARIN SODIUM
  22. ELIQUIN [Concomitant]
  23. METOPROLOL [Concomitant]
     Active Substance: METOPROLOL
  24. TETRAFERRIC TRICITRATE DECAHYDRATE [Concomitant]
     Active Substance: TETRAFERRIC TRICITRATE DECAHYDRATE
  25. FOLIC ACID [Concomitant]
     Active Substance: FOLIC ACID
  26. VITAMIN B COMPLEX [Concomitant]
     Active Substance: CYANOCOBALAMIN\DEXPANTHENOL\NIACINAMIDE\PYRIDOXINE HYDROCHLORIDE\RIBOFLAVIN 5^-PHOSPHATE SODIUM\THIA
  27. NOVOLOG [Concomitant]
     Active Substance: INSULIN ASPART
  28. GLIPIZIDE [Concomitant]
     Active Substance: GLIPIZIDE
  29. DIAZEPAM [Concomitant]
     Active Substance: DIAZEPAM
  30. MINERALS\VITAMINS [Concomitant]
     Active Substance: MINERALS\VITAMINS
  31. HYDROCHLOROTHIAZIDE [Concomitant]
     Active Substance: HYDROCHLOROTHIAZIDE
  32. TRILIPIX [Concomitant]
     Active Substance: FENOFIBRIC ACID
  33. AMITRIPTYLINE [Concomitant]
     Active Substance: AMITRIPTYLINE
  34. LEVOTHYROXINE SODIUM [Concomitant]
     Active Substance: LEVOTHYROXINE SODIUM
  35. LEVEMIR [Concomitant]
     Active Substance: INSULIN DETEMIR
  36. BACTROBAN [Concomitant]
     Active Substance: MUPIROCIN\MUPIROCIN CALCIUM
  37. AMLODIPINE [Concomitant]
     Active Substance: AMLODIPINE BESYLATE
  38. MEDROL [Concomitant]
     Active Substance: METHYLPREDNISOLONE
  39. PROAIR HFA [Concomitant]
     Active Substance: ALBUTEROL SULFATE
  40. QVAR [Concomitant]
     Active Substance: BECLOMETHASONE DIPROPIONATE
  41. NIFEDIPINE [Concomitant]
     Active Substance: NIFEDIPINE
  42. RENVELA [Concomitant]
     Active Substance: SEVELAMER CARBONATE
  43. SODIUM CHLORIDE [Concomitant]
     Active Substance: SODIUM CHLORIDE
  44. ROBAXIN [Concomitant]
     Active Substance: METHOCARBAMOL
  45. LABETALOL [Concomitant]
     Active Substance: LABETALOL\LABETALOL HYDROCHLORIDE
  46. BYDUREON [Concomitant]
     Active Substance: EXENATIDE
  47. DULERA [Concomitant]
     Active Substance: FORMOTEROL FUMARATE DIHYDRATE\MOMETASONE FUROATE
  48. ACETAMINOPHEN [Concomitant]
     Active Substance: ACETAMINOPHEN
  49. JANUMET [Concomitant]
     Active Substance: METFORMIN HYDROCHLORIDE\SITAGLIPTIN PHOSPHATE

REACTIONS (12)
  - Cardiac arrest [Fatal]
  - Cardiac failure [Fatal]
  - Myocardial infarction [Fatal]
  - Chronic kidney disease [Not Recovered/Not Resolved]
  - Acute kidney injury [Not Recovered/Not Resolved]
  - End stage renal disease [Not Recovered/Not Resolved]
  - Renal failure [Unknown]
  - Hypervolaemia [Unknown]
  - Metabolic acidosis [Unknown]
  - Nephrogenic anaemia [Unknown]
  - Rebound acid hypersecretion [Unknown]
  - Diabetes mellitus [Unknown]

NARRATIVE: CASE EVENT DATE: 20180405
